FAERS Safety Report 22107787 (Version 1)
Quarter: 2023Q1

REPORT INFORMATION
  Report Type: Spontaneous
  Country: US (occurrence: US)
  Receive Date: 20230317
  Receipt Date: 20230317
  Transmission Date: 20230417
  Serious: No
  Sender: FDA-Public Use
  Company Number: US-ALKEM LABORATORIES LIMITED-US-ALKEM-2023-01783

PATIENT
  Sex: Female

DRUGS (2)
  1. EVEROLIMUS [Suspect]
     Active Substance: EVEROLIMUS
     Indication: Hormone receptor positive HER2 negative breast cancer
     Dosage: 10 MILLIGRAMS, QD (DAILY)
     Route: 048
  2. CAROTUXIMAB [Suspect]
     Active Substance: CAROTUXIMAB
     Indication: Hormone receptor positive HER2 negative breast cancer
     Dosage: 15 MILLIGRAM/KILOGRAM, EVERY 2 WEEKS
     Route: 042

REACTIONS (1)
  - Treatment noncompliance [Unknown]
